FAERS Safety Report 9037042 (Version 2)
Quarter: 2013Q1

REPORT INFORMATION
  Report Type: Spontaneous
  Country: DE (occurrence: None)
  Receive Date: 20121221
  Receipt Date: 20130109
  Transmission Date: 20140127
  Serious: Yes (Hospitalization, Other)
  Sender: FDA-Public Use
  Company Number: 2012034253

PATIENT
  Age: 21 Year
  Sex: Male

DRUGS (5)
  1. HAEMATE P 3000 IU (ANTIHEMOPHILIC FACTOR (HUMAN) VWF, DRIED, PASTEURIZED) LOT# 2266911A [Suspect]
     Indication: PREOPERATIVE CARE
     Dosage: (NOT OTHERWISE SPECIFIED)
     Route: 042
     Dates: start: 20121207, end: 20121207
  2. HAEMATE P 3000 IU (ANTIHEMOPHILIC FACTOR (HUMAN) VWF, DRIED, PASTEURIZED) LOT# 2266911A [Suspect]
     Indication: DENTAL CARE
     Dosage: (NOT OTHERWISE SPECIFIED)
     Route: 042
     Dates: start: 20121207, end: 20121207
  3. HAEMATE P 3000 IU (ANTIHEMOPHILIC FACTOR (HUMAN) VWF, DRIED, PASTEURIZED) LOT# 2266911A [Suspect]
     Dosage: (NOT OTHERWISE SPECIFIED)
     Route: 042
     Dates: start: 20121207, end: 20121207
  4. FIBROQAMMIN P 1250 IU (FACTOR XIII (FIBRIN STABILISING FACTOR)) LOT# 27564211A [Suspect]
     Indication: PREOPERATIVE CARE
     Dosage: (NOT OTHERWISE SPECIFIED)
     Route: 042
     Dates: start: 20121207, end: 20121207
  5. FIBROQAMMIN P 1250 IU (FACTOR XIII (FIBRIN STABILISING FACTOR)) LOT# 27564211A [Suspect]
     Indication: DENTAL CARE
     Dosage: (NOT OTHERWISE SPECIFIED)
     Route: 042
     Dates: start: 20121207, end: 20121207

REACTIONS (6)
  - Flushing [None]
  - Paraesthesia [None]
  - Dysgeusia [None]
  - Tongue discolouration [None]
  - Erythema [None]
  - Paraesthesia oral [None]
